FAERS Safety Report 23455393 (Version 1)
Quarter: 2024Q1

REPORT INFORMATION
  Report Type: Spontaneous
  Country: GB (occurrence: GB)
  Receive Date: 20240130
  Receipt Date: 20240130
  Transmission Date: 20240410
  Serious: Yes (Other)
  Sender: FDA-Public Use
  Company Number: None

PATIENT
  Age: 9 Year
  Sex: Female
  Weight: 34 kg

DRUGS (11)
  1. METRONIDAZOLE [Suspect]
     Active Substance: METRONIDAZOLE
     Dosage: ADDITIONAL INFORMATION ON DRUG - INFUSION
     Route: 042
  2. ROCURONIUM [Concomitant]
     Active Substance: ROCURONIUM BROMIDE
     Dosage: 35 MILLIGRAMS
     Route: 042
     Dates: start: 20240117
  3. ROCURONIUM [Concomitant]
     Active Substance: ROCURONIUM BROMIDE
     Dosage: 10 MILLIGRAMS
     Route: 042
     Dates: start: 20240117
  4. ROCURONIUM [Concomitant]
     Active Substance: ROCURONIUM BROMIDE
     Dosage: 5 MILLIGRAMS
     Route: 042
     Dates: start: 20240117
  5. ONDANSETRON [Concomitant]
     Active Substance: ONDANSETRON
     Dosage: 2 MILLIGRAMS
     Route: 042
     Dates: start: 20240118, end: 20240118
  6. DEXAMETHASONE [Concomitant]
     Active Substance: DEXAMETHASONE
     Dosage: 3.3 MILLIGRAMS
     Route: 042
     Dates: start: 20240117
  7. FENTANYL [Concomitant]
     Active Substance: FENTANYL\FENTANYL CITRATE
     Dosage: 25 MILLIGRAMS, DOSAGE TEXT - 25 MG X 4
     Route: 065
     Dates: start: 20240117, end: 20240117
  8. PROPOFOL [Concomitant]
     Active Substance: PROPOFOL
     Dosage: 120 MILLIGRAMS
     Route: 042
     Dates: start: 20240117
  9. CEFTRIAXONE [Concomitant]
     Active Substance: CEFTRIAXONE\CEFTRIAXONE SODIUM
     Route: 042
  10. SUGAMMADEX [Concomitant]
     Active Substance: SUGAMMADEX
     Dosage: 100 MILLIGRAMS
     Route: 042
     Dates: start: 20240117
  11. MORPHINE [Concomitant]
     Active Substance: MORPHINE
     Dosage: ADDITIONAL INFORMATION ON DRUG - PCA (PATIENT CONTROLLED ANAESTHESIA)
     Route: 042

REACTIONS (4)
  - Ocular hyperaemia [Recovered/Resolved]
  - Periorbital swelling [Recovered/Resolved]
  - Erythema [Recovered/Resolved]
  - Swelling face [Recovered/Resolved]

NARRATIVE: CASE EVENT DATE: 20240119
